FAERS Safety Report 6172068-6 (Version None)
Quarter: 2009Q2

REPORT INFORMATION
  Report Type: 
  Country: None (occurrence: None)
  Receive Date: 20090428
  Receipt Date: 20090428
  Transmission Date: 20091009
  Serious: No
  Sender: FDA-Public Use
  Company Number: None

PATIENT
  Age: 64 Year
  Sex: Female
  Weight: 63.5036 kg

DRUGS (1)
  1. PREDNISONE [Suspect]
     Indication: RASH
     Dosage: 1   2 TIMES A DAY PO
     Route: 048
     Dates: start: 20090325, end: 20090329

REACTIONS (6)
  - ANXIETY [None]
  - CHEST PAIN [None]
  - HYPERTENSION [None]
  - NO THERAPEUTIC RESPONSE [None]
  - PARAESTHESIA [None]
  - SKIN DISCOLOURATION [None]
